FAERS Safety Report 10064598 (Version 2)
Quarter: 2014Q2

REPORT INFORMATION
  Report Type: Report from Study
  Country: CA (occurrence: CA)
  Receive Date: 20140408
  Receipt Date: 20140411
  Transmission Date: 20141212
  Serious: Yes (Other)
  Sender: FDA-Public Use
  Company Number: CA-SA-2014SA043487

PATIENT
  Age: 68 Year
  Sex: Male

DRUGS (1)
  1. ELIGARD [Suspect]
     Indication: PROSTATE CANCER
     Dosage: FREQ.: EVERY 3 MONTHS
     Route: 065
     Dates: start: 20090309, end: 20140109

REACTIONS (3)
  - Sleep disorder [Unknown]
  - Ill-defined disorder [Unknown]
  - Communication disorder [Unknown]
